FAERS Safety Report 15880875 (Version 1)
Quarter: 2019Q1

REPORT INFORMATION
  Report Type: Spontaneous
  Country: US (occurrence: US)
  Receive Date: 20190128
  Receipt Date: 20190128
  Transmission Date: 20190417
  Serious: Yes (Other)
  Sender: FDA-Public Use
  Company Number: None

PATIENT
  Sex: Male

DRUGS (1)
  1. CORALITE PAIN RELIEF [Suspect]
     Active Substance: CAPSAICIN\MENTHOL
     Indication: MUSCLE STRAIN
     Dosage: ?          QUANTITY:20 PATCH(ES);?
     Route: 062

REACTIONS (5)
  - Application site erythema [None]
  - Skin erosion [None]
  - Skin disorder [None]
  - Application site pruritus [None]
  - Application site burn [None]

NARRATIVE: CASE EVENT DATE: 20181211
